FAERS Safety Report 12417060 (Version 1)
Quarter: 2016Q2

REPORT INFORMATION
  Report Type: Report from Study
  Country: US (occurrence: US)
  Receive Date: 20160530
  Receipt Date: 20160530
  Transmission Date: 20160815
  Serious: Yes (Other)
  Sender: FDA-Public Use
  Company Number: US-UCBSA-2015005687

PATIENT
  Age: 65 Year
  Sex: Female
  Weight: 52.15 kg

DRUGS (7)
  1. PERPHENAZINE W/AMITRIPTYLINE [Concomitant]
     Indication: SLEEP DISORDER
     Dosage: 2-10 MG BEDTIME
     Route: 048
  2. SINGULAIR [Concomitant]
     Active Substance: MONTELUKAST SODIUM
     Indication: SEASONAL ALLERGY
     Dosage: UNK, ONCE DAILY (QD)
     Route: 048
  3. CERTOLIZUMAB PEGOL [Suspect]
     Active Substance: CERTOLIZUMAB PEGOL
     Indication: CROHN^S DISEASE
     Dosage: 400 MG, EV 4 WEEKS (EXPIRY DATE: ??-FEB-2018 00:00)
     Route: 058
     Dates: start: 20120820, end: 201603
  4. SYNTHROID [Concomitant]
     Active Substance: LEVOTHYROXINE SODIUM
     Dosage: 0.75 MG, ONCE DAILY (QD)
     Route: 048
  5. OMEPRAZOLE. [Concomitant]
     Active Substance: OMEPRAZOLE
     Indication: GASTROOESOPHAGEAL REFLUX DISEASE
     Dosage: 20 MG, EV 2 DAYS (QOD)
     Route: 048
  6. SYNTHROID [Concomitant]
     Active Substance: LEVOTHYROXINE SODIUM
     Indication: HYPOTHYROIDISM
     Dosage: 0.025 MG, ONCE DAILY (QD)
     Route: 048
  7. LINACLOTIDE [Concomitant]
     Active Substance: LINACLOTIDE
     Indication: CONSTIPATION
     Dosage: UNK, ONCE DAILY (QD)
     Route: 048

REACTIONS (4)
  - Scleritis [Recovered/Resolved]
  - Systemic lupus erythematosus [Unknown]
  - Arthritis [Recovered/Resolved]
  - Arthralgia [Not Recovered/Not Resolved]

NARRATIVE: CASE EVENT DATE: 20141229
